FAERS Safety Report 7558884-4 (Version None)
Quarter: 2011Q2

REPORT INFORMATION
  Report Type: 
  Country: None (occurrence: None)
  Receive Date: 20110613
  Receipt Date: 20110530
  Transmission Date: 20111010
  Serious: Yes (Hospitalization, Other)
  Sender: FDA-Public Use
  Company Number: DSJ-2011-10934

PATIENT
  Age: 6 Decade
  Sex: Female

DRUGS (7)
  1. NITRENDIPINE (NITRENDIPINE) (NITRENDIPINE) [Suspect]
     Indication: HYPERTENSION
     Dosage: PER ORAL
     Route: 048
     Dates: start: 20110201, end: 20110201
  2. MESALAZINE (MESALAZINE) (MESALAZINE) [Concomitant]
  3. PAROXETINE (PAROXETINE) (PAROXETINE) [Concomitant]
  4. LEVOTHYROXINE SODIUM (LEVOTHYROXINE SODIUM) (LEVOTHYROXINE SODIUM) [Concomitant]
  5. ROSUVASTATIN [Concomitant]
  6. BENICAR [Suspect]
     Indication: HYPERTENSION
     Dosage: 20 MG (20 MG, 1 IN 1 D), PER ORAL ;40 MG (40 MG, 1 IN 1 D), PER ORAL
     Route: 048
     Dates: start: 20110201
  7. BENICAR [Suspect]
     Indication: HYPERTENSION
     Dosage: 20 MG (20 MG, 1 IN 1 D), PER ORAL ;40 MG (40 MG, 1 IN 1 D), PER ORAL
     Route: 048
     Dates: start: 20070101, end: 20110201

REACTIONS (8)
  - TINNITUS [None]
  - CYSTITIS [None]
  - DIARRHOEA [None]
  - RENAL NEOPLASM [None]
  - DRUG INEFFECTIVE [None]
  - TACHYCARDIA [None]
  - HAEMATURIA [None]
  - COLITIS ULCERATIVE [None]
